FAERS Safety Report 7117824-2 (Version None)
Quarter: 2010Q4

REPORT INFORMATION
  Report Type: 
  Country: None (occurrence: None)
  Receive Date: 20101118
  Receipt Date: 20101118
  Transmission Date: 20110411
  Serious: No
  Sender: FDA-Public Use
  Company Number: None

PATIENT

DRUGS (3)
  1. NITROGLYCERIN [Suspect]
     Indication: CORONARY ARTERY STENOSIS
     Dosage: 1000 MCG X1 INTRACORONARY; 1000 MCG X1 INTRACORONARY
     Route: 022
     Dates: start: 20101104
  2. NITROGLYCERIN [Suspect]
     Indication: CORONARY ARTERY STENOSIS
     Dosage: 1000 MCG X1 INTRACORONARY; 1000 MCG X1 INTRACORONARY
     Route: 022
     Dates: start: 20101105
  3. . [Concomitant]

REACTIONS (1)
  - THROMBOSIS IN DEVICE [None]
